FAERS Safety Report 5200085-9 (Version None)
Quarter: 2007Q1

REPORT INFORMATION
  Report Type: 
  Country: None (occurrence: None)
  Receive Date: 20070105
  Receipt Date: 20061221
  Transmission Date: 20070707
  Serious: Yes (Hospitalization)
  Sender: FDA-Public Use
  Company Number: FR-GLAXOSMITHKLINE-B0377184B

PATIENT
  Age: 59 Year
  Sex: Male
  Weight: 75 kg

DRUGS (2)
  1. ROSIGLITAZONE [Suspect]
     Dosage: 2TAB PER DAY
     Route: 048
     Dates: start: 20021212
  2. GLICLAZIDE [Concomitant]
     Route: 048
     Dates: start: 20010213

REACTIONS (1)
  - CORONARY ARTERY OCCLUSION [None]
